FAERS Safety Report 19289917 (Version 1)
Quarter: 2021Q2

REPORT INFORMATION
  Report Type: Spontaneous
  Country: US (occurrence: US)
  Receive Date: 20210521
  Receipt Date: 20210521
  Transmission Date: 20210717
  Serious: No
  Sender: FDA-Public Use
  Company Number: US-RADIUS HEALTH INC.-2021US000021

PATIENT
  Age: 67 Year
  Sex: Female

DRUGS (1)
  1. TYMLOS [Suspect]
     Active Substance: ABALOPARATIDE
     Indication: RHEUMATOID ARTHRITIS
     Dosage: 80 MCG, QD
     Route: 058
     Dates: start: 20200716

REACTIONS (4)
  - Urticaria [Recovering/Resolving]
  - Injection site pain [Unknown]
  - Product dose omission issue [Unknown]
  - Product use in unapproved indication [Unknown]

NARRATIVE: CASE EVENT DATE: 20201218
